FAERS Safety Report 14030171 (Version 1)
Quarter: 2017Q4

REPORT INFORMATION
  Report Type: Spontaneous
  Country: US (occurrence: US)
  Receive Date: 20171001
  Receipt Date: 20171001
  Transmission Date: 20180321
  Serious: Yes (Other)
  Sender: FDA-Public Use
  Company Number: US-AMGEN-USASP2017145217

PATIENT
  Sex: Female

DRUGS (2)
  1. PROLIA [Suspect]
     Active Substance: DENOSUMAB
     Dosage: UNK
     Route: 065
     Dates: start: 20170918, end: 20170918
  2. PROLIA [Suspect]
     Active Substance: DENOSUMAB
     Indication: PRODUCT USED FOR UNKNOWN INDICATION
     Dosage: UNK
     Route: 065
     Dates: start: 20130731, end: 20160216

REACTIONS (11)
  - Wrist fracture [Unknown]
  - Ankle fracture [Unknown]
  - Pain in jaw [Unknown]
  - Fatigue [Unknown]
  - Sleep disorder due to a general medical condition [Unknown]
  - Dyspnoea [Unknown]
  - Back pain [Unknown]
  - Fall [Unknown]
  - Pain [Unknown]
  - Retching [Unknown]
  - Myalgia [Unknown]

NARRATIVE: CASE EVENT DATE: 201709
